FAERS Safety Report 25127663 (Version 1)
Quarter: 2025Q1

REPORT INFORMATION
  Report Type: Spontaneous
  Country: DE (occurrence: DE)
  Receive Date: 20250327
  Receipt Date: 20250327
  Transmission Date: 20250409
  Serious: Yes (Congenital Anomaly)
  Sender: ABBVIE
  Company Number: DE-EMB-M202309488-1

PATIENT
  Sex: Female
  Weight: 2.95 kg

DRUGS (1)
  1. MESALAMINE [Suspect]
     Active Substance: MESALAMINE
     Indication: Maternal exposure timing unspecified
     Route: 064

REACTIONS (2)
  - Congenital anisocoria [Unknown]
  - Foetal exposure during pregnancy [Unknown]
